FAERS Safety Report 7377764-0 (Version None)
Quarter: 2011Q1

REPORT INFORMATION
  Report Type: 
  Country: None (occurrence: None)
  Receive Date: 20110328
  Receipt Date: 20110318
  Transmission Date: 20110831
  Serious: Yes (Hospitalization, Disabling, Other)
  Sender: FDA-Public Use
  Company Number: US-PFIZER INC-2009249544

PATIENT
  Sex: Female

DRUGS (4)
  1. PREMPRO [Suspect]
     Indication: HORMONE REPLACEMENT THERAPY
     Dosage: 0.625/5 MG
     Route: 048
     Dates: start: 19990101, end: 20010101
  2. PREMARIN [Suspect]
     Indication: HORMONE REPLACEMENT THERAPY
     Dosage: 0.625 MG, UNK
     Route: 048
     Dates: start: 19920101, end: 19990101
  3. PROVERA [Suspect]
     Indication: HORMONE REPLACEMENT THERAPY
     Dosage: 5 MG, UNK
     Route: 048
     Dates: start: 19920101, end: 19980101
  4. CYCRIN [Suspect]
     Indication: HORMONE REPLACEMENT THERAPY
     Dosage: 5 MG, UNK
     Route: 048
     Dates: start: 19980101, end: 19990101

REACTIONS (3)
  - BREAST CANCER [None]
  - MYOCARDIAL INFARCTION [None]
  - THROMBOSIS [None]
